FAERS Safety Report 6960120-4 (Version None)
Quarter: 2010Q3

REPORT INFORMATION
  Report Type: 
  Country: None (occurrence: None)
  Receive Date: 20100901
  Receipt Date: 20100819
  Transmission Date: 20110219
  Serious: Yes (Other)
  Sender: FDA-Public Use
  Company Number: PHHY2010US13064

PATIENT
  Age: 58 Year
  Sex: Female
  Weight: 72.562 kg

DRUGS (2)
  1. GLEEVEC [Suspect]
     Indication: CHRONIC MYELOID LEUKAEMIA
     Dosage: 400 MG, DAILY
     Route: 048
     Dates: start: 20090908
  2. GLEEVEC [Suspect]
     Dosage: 300 MG, DAILY
     Route: 048
     Dates: start: 20100817

REACTIONS (6)
  - FATIGUE [None]
  - LABORATORY TEST ABNORMAL [None]
  - MUSCLE SPASMS [None]
  - OEDEMA [None]
  - RENAL DISORDER [None]
  - SWELLING [None]
